FAERS Safety Report 5721700-7 (Version None)
Quarter: 2008Q2

REPORT INFORMATION
  Report Type: 
  Country: None (occurrence: None)
  Receive Date: 20080429
  Receipt Date: 20080417
  Transmission Date: 20081010
  Serious: Yes (Other)
  Sender: FDA-Public Use
  Company Number: JP-ROCHE-560091

PATIENT
  Age: 7 Year
  Sex: Male
  Weight: 23 kg

DRUGS (7)
  1. TAMIFLU [Suspect]
     Indication: INFLUENZA
     Dosage: FORM DRY SYRUP
     Route: 048
     Dates: start: 20080215, end: 20080215
  2. ASVERIN [Concomitant]
     Dosage: FORM ORAL FORMULATION NOS
     Route: 048
  3. PERIACTIN [Concomitant]
     Dosage: FORM ORAL FORMULATION NOS
     Route: 048
  4. MUCOSAL [Concomitant]
     Route: 048
  5. SENEGA [Concomitant]
     Route: 048
  6. CALONAL [Concomitant]
     Dosage: FORM FINE GRANULE
     Route: 048
  7. SP [Concomitant]
     Dosage: FORM LOZENGE
     Route: 048

REACTIONS (2)
  - ABNORMAL BEHAVIOUR [None]
  - CONVULSION [None]
